FAERS Safety Report 5742211-9 (Version None)
Quarter: 2008Q2

REPORT INFORMATION
  Report Type: 
  Country: None (occurrence: None)
  Receive Date: 20080514
  Receipt Date: 20080514
  Transmission Date: 20081010
  Serious: Yes (Other)
  Sender: FDA-Public Use
  Company Number: None

PATIENT
  Age: 36 Year
  Sex: Male
  Weight: 86.1834 kg

DRUGS (1)
  1. DIGOXIN [Suspect]
     Indication: CARDIOMYOPATHY
     Dosage: 0.125 ONCE DAILY PO
     Route: 048
     Dates: start: 20041211, end: 20080512

REACTIONS (8)
  - DECREASED ACTIVITY [None]
  - FATIGUE [None]
  - FEELING ABNORMAL [None]
  - LISTLESS [None]
  - NAUSEA [None]
  - OVERDOSE [None]
  - PHARMACEUTICAL PRODUCT COMPLAINT [None]
  - VOMITING [None]
